FAERS Safety Report 5983622-6 (Version None)
Quarter: 2008Q4

REPORT INFORMATION
  Report Type: 
  Country: None (occurrence: None)
  Receive Date: 20081205
  Receipt Date: 20081205
  Transmission Date: 20090506
  Serious: Yes (Hospitalization)
  Sender: FDA-Public Use
  Company Number: None

PATIENT
  Sex: Male
  Weight: 118.5 kg

DRUGS (11)
  1. TEMOZOLOMIDE [Suspect]
     Dosage: 3780 MG
  2. ASPIRIN [Concomitant]
  3. CALCIUM +VIT D [Concomitant]
  4. DECADRON [Concomitant]
  5. FERROUS SULFATE TAB [Concomitant]
  6. KEPPRA [Concomitant]
  7. METOPROLOL [Concomitant]
  8. MULTI-VIT [Concomitant]
  9. NEXIUM [Concomitant]
  10. NITROSTAT [Concomitant]
  11. VYTORIN [Concomitant]

REACTIONS (2)
  - AGITATION [None]
  - ATRIAL FIBRILLATION [None]
